FAERS Safety Report 11092478 (Version 1)
Quarter: 2015Q2

REPORT INFORMATION
  Report Type: Spontaneous
  Country: US (occurrence: US)
  Receive Date: 20150506
  Receipt Date: 20150506
  Transmission Date: 20150821
  Serious: No
  Sender: FDA-Public Use
  Company Number: US-009507513-1504USA014701

PATIENT
  Age: 24 Year
  Sex: Female
  Weight: 98.87 kg

DRUGS (1)
  1. IMPLANON [Suspect]
     Active Substance: ETONOGESTREL
     Indication: CONTRACEPTION
     Dosage: 1 DF, UNK, 1 ROD FOR 3 YEARS , IN LEFT ARM
     Route: 059
     Dates: start: 20120525

REACTIONS (2)
  - Implant site pruritus [Unknown]
  - Implant site swelling [Unknown]

NARRATIVE: CASE EVENT DATE: 20150330
